FAERS Safety Report 5907036-X (Version None)
Quarter: 2008Q4

REPORT INFORMATION
  Report Type: 
  Country: None (occurrence: None)
  Receive Date: 20081003
  Receipt Date: 20080929
  Transmission Date: 20090506
  Serious: Yes (Death, Hospitalization, Other)
  Sender: FDA-Public Use
  Company Number: HK-BAYER-200827315GPV

PATIENT
  Age: 66 Year
  Sex: Male

DRUGS (8)
  1. SORAFENIB [Suspect]
     Indication: HEPATIC CANCER METASTATIC
     Dosage: TOTAL DAILY DOSE: 800 MG  UNIT DOSE: 200 MG
     Route: 048
     Dates: start: 20080415, end: 20080618
  2. SORAFENIB [Suspect]
     Dosage: TOTAL DAILY DOSE: 400 MG  UNIT DOSE: 200 MG
     Route: 048
     Dates: start: 20080707, end: 20080801
  3. CAPECITABINE [Suspect]
     Indication: HEPATIC CANCER METASTATIC
     Dosage: TOTAL DAILY DOSE: 3000 MG
     Route: 048
     Dates: start: 20080527
  4. OXALIPLATIN [Suspect]
     Indication: HEPATIC CANCER METASTATIC
  5. VITAMIN B6 [Concomitant]
     Indication: DRUG USE FOR UNKNOWN INDICATION
     Dosage: TOTAL DAILY DOSE: 200 MG
     Route: 048
  6. LAMIVUDINE [Concomitant]
     Indication: DRUG USE FOR UNKNOWN INDICATION
     Route: 048
  7. FAMOTIDINE [Concomitant]
     Indication: DRUG USE FOR UNKNOWN INDICATION
     Dosage: TOTAL DAILY DOSE: 40 MG
     Route: 048
  8. ESSENTIALE [Concomitant]
     Indication: DRUG USE FOR UNKNOWN INDICATION
     Route: 048

REACTIONS (6)
  - ASTHMA [None]
  - GENERAL PHYSICAL HEALTH DETERIORATION [None]
  - HAEMATEMESIS [None]
  - RESPIRATORY FAILURE [None]
  - UPPER GASTROINTESTINAL HAEMORRHAGE [None]
  - UPPER RESPIRATORY TRACT INFECTION [None]
